FAERS Safety Report 4279575-1 (Version None)
Quarter: 2004Q1

REPORT INFORMATION
  Report Type: 
  Country: None (occurrence: None)
  Receive Date: 20040123
  Receipt Date: 20040120
  Transmission Date: 20041129
  Serious: Yes (Other)
  Sender: FDA-Public Use
  Company Number: 2004194599JP

PATIENT
  Age: 14 Year
  Sex: Male

DRUGS (2)
  1. GENOTROPIN [Suspect]
     Indication: DWARFISM
     Dosage: SEE IMAGE
     Route: 058
     Dates: start: 20020816
  2. GENOTROPIN [Suspect]
     Indication: DWARFISM
     Dosage: SEE IMAGE
     Route: 058
     Dates: start: 20031017

REACTIONS (1)
  - PARTIAL SEIZURES WITH SECONDARY GENERALISATION [None]
